FAERS Safety Report 5682724-1 (Version None)
Quarter: 2008Q1

REPORT INFORMATION
  Report Type: 
  Country: None (occurrence: None)
  Receive Date: 20071022
  Receipt Date: 20071022
  Transmission Date: 20080703
  Serious: Yes (Hospitalization)
  Sender: FDA-Public Use
  Company Number: None

PATIENT
  Age: 47 Year
  Sex: Female
  Weight: 76.3404 kg

DRUGS (17)
  1. BEVACIZUMAB [Suspect]
     Indication: LUNG NEOPLASM MALIGNANT
     Dosage: BLINDED MED IV
     Route: 042
  2. TARCEVA [Suspect]
     Dosage: 150MG PO
     Route: 048
  3. BUPROPION HCL [Concomitant]
  4. CEFTRIAXONE [Concomitant]
  5. CITALOPRAM [Concomitant]
  6. CODEINE/GUAIFENISEN [Concomitant]
  7. DOXYCYCLINE [Concomitant]
  8. ENOXAPARIN SODIUM [Concomitant]
  9. ESTRADISOL [Concomitant]
  10. FOLIC ACID [Concomitant]
  11. MORPHINE [Concomitant]
  12. M.V.I. [Concomitant]
  13. NICOTINE [Concomitant]
  14. OMEPRAZOLE [Concomitant]
  15. OXYCODONE HCL [Concomitant]
  16. PREDNISONE [Concomitant]
  17. PROCHLORPERAZINE [Concomitant]

REACTIONS (2)
  - COUGH [None]
  - HAEMOPTYSIS [None]
